FAERS Safety Report 25616415 (Version 1)
Quarter: 2025Q3

REPORT INFORMATION
  Report Type: Spontaneous
  Country: ID (occurrence: ID)
  Receive Date: 20250729
  Receipt Date: 20250729
  Transmission Date: 20251021
  Serious: Yes (Life-Threatening, Hospitalization)
  Sender: MACLEODS
  Company Number: ID-MACLEODS PHARMA-MAC2025054290

PATIENT

DRUGS (3)
  1. PROPYLTHIOURACIL [Suspect]
     Active Substance: PROPYLTHIOURACIL
     Indication: Graves^ disease
     Dosage: PAST TWO WEEKS
     Route: 065
  2. PROPYLTHIOURACIL [Suspect]
     Active Substance: PROPYLTHIOURACIL
     Indication: Hyperthyroidism
  3. PROPRANOLOL [Suspect]
     Active Substance: PROPRANOLOL HYDROCHLORIDE
     Indication: Product used for unknown indication
     Route: 065

REACTIONS (6)
  - Thyrotoxic crisis [Recovered/Resolved]
  - Hyperbilirubinaemia [Recovered/Resolved]
  - Atrioventricular block [Recovered/Resolved]
  - Goitre [Recovered/Resolved]
  - Hypokalaemia [Recovered/Resolved]
  - Jaundice [Recovered/Resolved]
